APPROVED DRUG PRODUCT: CEFAZOLIN SODIUM
Active Ingredient: CEFAZOLIN SODIUM
Strength: EQ 1GM BASE/VIAL
Dosage Form/Route: INJECTABLE;INJECTION
Application: A065345 | Product #001
Applicant: SANDOZ INC
Approved: May 9, 2007 | RLD: No | RS: No | Type: DISCN